FAERS Safety Report 10070804 (Version 4)
Quarter: 2014Q3

REPORT INFORMATION
  Report Type: Spontaneous
  Country: US (occurrence: US)
  Receive Date: 20140410
  Receipt Date: 20140929
  Transmission Date: 20150326
  Serious: Yes (Hospitalization, Other)
  Sender: FDA-Public Use
  Company Number: US-009507513-1404USA004903

PATIENT
  Sex: Female
  Weight: 77.55 kg

DRUGS (1)
  1. JANUVIA [Suspect]
     Active Substance: SITAGLIPTIN PHOSPHATE
     Indication: TYPE 2 DIABETES MELLITUS
     Dosage: 100 MG, QD
     Route: 048
     Dates: start: 201109, end: 201209

REACTIONS (13)
  - Adenocarcinoma pancreas [Unknown]
  - Pancreaticoduodenectomy [Unknown]
  - Pneumobilia [Unknown]
  - Jejunostomy [Unknown]
  - Chronic respiratory disease [Not Recovered/Not Resolved]
  - Oedema [Unknown]
  - Cyanosis [Unknown]
  - Clubbing [Unknown]
  - Hepatic steatosis [Unknown]
  - Renal cyst [Unknown]
  - Surgery [Unknown]
  - Pancreatitis acute [Unknown]
  - Aortic calcification [Unknown]

NARRATIVE: CASE EVENT DATE: 20130115
